FAERS Safety Report 14750547 (Version 3)
Quarter: 2019Q1

REPORT INFORMATION
  Report Type: Report from Study
  Country: DE (occurrence: DE)
  Receive Date: 20180412
  Receipt Date: 20190304
  Transmission Date: 20190417
  Serious: Yes (Other)
  Sender: FDA-Public Use
  Company Number: DE-ROCHE-2105537

PATIENT
  Age: 68 Year
  Sex: Female

DRUGS (22)
  1. PERTUZUMAB. [Suspect]
     Active Substance: PERTUZUMAB
     Indication: HER-2 POSITIVE BREAST CANCER
     Dosage: LOADING DOSE
     Route: 042
     Dates: start: 20150519, end: 20150519
  2. PERTUZUMAB. [Suspect]
     Active Substance: PERTUZUMAB
     Dosage: MAINTAINANCE DOSE
     Route: 042
     Dates: start: 20150609, end: 20160527
  3. DEXAMETHASON [Concomitant]
     Active Substance: DEXAMETHASONE
     Dosage: DAY TWO OF EACH CYCLE
     Route: 048
     Dates: start: 20150519, end: 20151015
  4. GRANOCYTE [Concomitant]
     Active Substance: LENOGRASTIM
     Route: 058
     Dates: start: 20150616, end: 20150618
  5. DOCETAXEL. [Concomitant]
     Active Substance: DOCETAXEL
     Indication: BREAST CANCER
     Dosage: 100-125 MG
     Route: 042
     Dates: start: 20150519, end: 20151013
  6. FILGRASTIM [Concomitant]
     Active Substance: FILGRASTIM
     Indication: LEUKOPENIA
     Dosage: DAY 8
     Route: 058
     Dates: start: 20150526, end: 20150526
  7. ALOXI [Concomitant]
     Active Substance: PALONOSETRON HYDROCHLORIDE
     Dosage: DAY ONE OF EACH CYCLE
     Route: 042
     Dates: start: 20150519, end: 20151013
  8. TRASTUZUMAB. [Suspect]
     Active Substance: TRASTUZUMAB
     Indication: HER-2 POSITIVE BREAST CANCER
     Route: 042
     Dates: start: 20150519, end: 20150519
  9. TRASTUZUMAB. [Suspect]
     Active Substance: TRASTUZUMAB
     Route: 042
     Dates: start: 20151103
  10. METOCLOPRAMIDE. [Concomitant]
     Active Substance: METOCLOPRAMIDE
     Indication: VOMITING
     Route: 048
     Dates: start: 20151006, end: 20151020
  11. DEXAMETHASON [Concomitant]
     Active Substance: DEXAMETHASONE
     Dosage: DAY ONE OF EACH CYCLE
     Route: 042
     Dates: start: 20150519
  12. GRANOCYTE [Concomitant]
     Active Substance: LENOGRASTIM
     Dosage: DAY 8+9
     Route: 058
     Dates: start: 20150818, end: 20150819
  13. TRASTUZUMAB. [Suspect]
     Active Substance: TRASTUZUMAB
     Route: 042
     Dates: start: 20150609, end: 20150721
  14. TRASTUZUMAB. [Suspect]
     Active Substance: TRASTUZUMAB
     Route: 042
     Dates: end: 20160510
  15. TRASTUZUMAB. [Suspect]
     Active Substance: TRASTUZUMAB
     Route: 042
     Dates: end: 20160527
  16. GRANOCYTE [Concomitant]
     Active Substance: LENOGRASTIM
     Dosage: DAY 8+9
     Route: 058
     Dates: start: 20150908, end: 20150909
  17. PANTOZOL [Concomitant]
     Active Substance: PANTOPRAZOLE SODIUM
     Indication: PROPHYLAXIS
     Route: 048
     Dates: start: 20170404
  18. TRASTUZUMAB. [Suspect]
     Active Substance: TRASTUZUMAB
     Route: 042
     Dates: start: 20150811, end: 20151031
  19. GRANOCYTE [Concomitant]
     Active Substance: LENOGRASTIM
     Dosage: DAY 8-10
     Route: 058
     Dates: start: 20150707, end: 20150710
  20. MCP [Concomitant]
     Active Substance: METOCLOPRAMIDE HYDROCHLORIDE
     Indication: PROPHYLAXIS OF NAUSEA AND VOMITING
     Route: 048
     Dates: start: 20151006, end: 20151020
  21. GRANOCYTE [Concomitant]
     Active Substance: LENOGRASTIM
     Dosage: DAY 7+9
     Route: 058
     Dates: start: 20150727, end: 20150729
  22. AZITHROMYCIN ANHYDROUS. [Concomitant]
     Active Substance: AZITHROMYCIN ANHYDROUS
     Indication: BRONCHITIS
     Route: 048
     Dates: start: 20181228, end: 20181230

REACTIONS (16)
  - Oral candidiasis [Recovered/Resolved]
  - Leukopenia [Recovered/Resolved]
  - Dysgeusia [Not Recovered/Not Resolved]
  - Headache [Recovered/Resolved]
  - Polyneuropathy [Not Recovered/Not Resolved]
  - Stomatitis [Recovered/Resolved]
  - Dizziness [Recovered/Resolved]
  - Metastases to central nervous system [Not Recovered/Not Resolved]
  - Constipation [Recovered/Resolved]
  - Onychoclasis [Unknown]
  - Oedema [Recovered/Resolved]
  - Myalgia [Recovered/Resolved]
  - Fatigue [Not Recovered/Not Resolved]
  - Eye movement disorder [Not Recovered/Not Resolved]
  - Gait disturbance [Recovered/Resolved]
  - Leukopenia [Recovered/Resolved]

NARRATIVE: CASE EVENT DATE: 20150526
